FAERS Safety Report 5133897-0 (Version None)
Quarter: 2006Q4

REPORT INFORMATION
  Report Type: 
  Country: None (occurrence: None)
  Receive Date: 20061018
  Receipt Date: 20061002
  Transmission Date: 20070319
  Serious: Yes (Hospitalization)
  Sender: FDA-Public Use
  Company Number: TRP_0741_2006

PATIENT
  Age: 45 Year
  Sex: Male
  Weight: 84.3 kg

DRUGS (2)
  1. RIBASPHERE [Suspect]
     Indication: HEPATITIS C
     Dosage: 600 MG BID, PO
     Route: 048
     Dates: start: 20060106
  2. INFERGEN [Suspect]
     Indication: HEPATITIS C
     Dosage: 9 MCG QDAY; SC
     Route: 058
     Dates: start: 20060106

REACTIONS (1)
  - SYNCOPE [None]
